FAERS Safety Report 15652923 (Version 1)
Quarter: 2018Q4

REPORT INFORMATION
  Report Type: Spontaneous
  Country: US (occurrence: US)
  Receive Date: 20181123
  Receipt Date: 20181123
  Transmission Date: 20190205
  Serious: Yes (Other)
  Sender: FDA-Public Use
  Company Number: US-NOVOPROD-599863

PATIENT
  Age: 70 Year
  Sex: Male

DRUGS (3)
  1. NOVOLOG [Suspect]
     Active Substance: INSULIN ASPART
     Indication: TYPE 1 DIABETES MELLITUS
     Dosage: 8 U, UNK
     Route: 058
     Dates: start: 2005
  2. LEVOTHYROXINE. [Concomitant]
     Active Substance: LEVOTHYROXINE
     Indication: PRODUCT USED FOR UNKNOWN INDICATION
     Dosage: 25 ?G, QD
  3. NOVOLOG [Suspect]
     Active Substance: INSULIN ASPART
     Dosage: 100 U, QD UP TO SOMETIMES
     Route: 058

REACTIONS (6)
  - Weight decreased [Unknown]
  - Hypoglycaemia [Recovered/Resolved]
  - Unevaluable event [Unknown]
  - Hypoglycaemic unconsciousness [Recovered/Resolved]
  - Insulin resistance [Unknown]
  - Hypoglycaemia [Recovered/Resolved]

NARRATIVE: CASE EVENT DATE: 2005
